FAERS Safety Report 25906353 (Version 1)
Quarter: 2025Q4

REPORT INFORMATION
  Report Type: Spontaneous
  Country: JP (occurrence: JP)
  Receive Date: 20251010
  Receipt Date: 20251010
  Transmission Date: 20260118
  Serious: Yes (Death, Hospitalization, Other)
  Sender: SANOFI AVENTIS
  Company Number: JP-SA-2025SA295673

PATIENT
  Age: 61 Year
  Sex: Male

DRUGS (14)
  1. OXALIPLATIN [Suspect]
     Active Substance: OXALIPLATIN
     Indication: Gastric cancer
     Dosage: UNK
     Route: 041
     Dates: start: 20241224
  2. OXALIPLATIN [Suspect]
     Active Substance: OXALIPLATIN
     Indication: Metastases to liver
     Dosage: UNK
     Dates: start: 20250422
  3. OXALIPLATIN [Suspect]
     Active Substance: OXALIPLATIN
     Dosage: UNK
     Dates: start: 20250513
  4. OXALIPLATIN [Suspect]
     Active Substance: OXALIPLATIN
     Dosage: UNK
     Dates: start: 20250909
  5. CAPECITABINE [Suspect]
     Active Substance: CAPECITABINE
     Indication: Gastric cancer
     Dosage: UNK
     Route: 048
     Dates: start: 20250909
  6. CAPECITABINE [Suspect]
     Active Substance: CAPECITABINE
     Indication: Metastases to liver
  7. GIMERACIL\OTERACIL\TEGAFUR [Suspect]
     Active Substance: GIMERACIL\OTERACIL POTASSIUM\TEGAFUR
     Indication: Gastric cancer
     Dosage: UNK
     Route: 048
     Dates: start: 20241224
  8. GIMERACIL\OTERACIL\TEGAFUR [Suspect]
     Active Substance: GIMERACIL\OTERACIL POTASSIUM\TEGAFUR
     Dosage: UNK
     Route: 048
     Dates: start: 20250422
  9. GIMERACIL\OTERACIL\TEGAFUR [Suspect]
     Active Substance: GIMERACIL\OTERACIL POTASSIUM\TEGAFUR
     Dosage: UNK
     Route: 048
     Dates: start: 20250513
  10. NIVOLUMAB [Suspect]
     Active Substance: NIVOLUMAB
     Indication: Gastric cancer
     Dosage: UNK
     Route: 041
     Dates: start: 20241224
  11. ZOLBETUXIMAB [Suspect]
     Active Substance: ZOLBETUXIMAB
     Indication: Gastric cancer
     Dosage: UNK
     Route: 041
     Dates: start: 20250909
  12. IRINOTECAN [Suspect]
     Active Substance: IRINOTECAN
  13. IRINOTECAN [Suspect]
     Active Substance: IRINOTECAN
  14. IRINOTECAN [Suspect]
     Active Substance: IRINOTECAN

REACTIONS (8)
  - Platelet count decreased [Fatal]
  - White blood cell count decreased [Fatal]
  - Neutropenia [Fatal]
  - Abdominal pain [Unknown]
  - Melaena [Unknown]
  - Interstitial lung disease [Unknown]
  - Malaise [Unknown]
  - Decreased appetite [Unknown]

NARRATIVE: CASE EVENT DATE: 20250916
